FAERS Safety Report 13934393 (Version 1)
Quarter: 2017Q3

REPORT INFORMATION
  Report Type: Spontaneous
  Country: SE (occurrence: SE)
  Receive Date: 20170905
  Receipt Date: 20170905
  Transmission Date: 20171127
  Serious: Yes (Hospitalization)
  Sender: FDA-Public Use
  Company Number: SE-CONCORDIA PHARMACEUTICALS INC.-GSH201708-004818

PATIENT
  Age: 84 Year
  Sex: Male

DRUGS (3)
  1. DIGOXIN. [Suspect]
     Active Substance: DIGOXIN
     Route: 048
  2. ENALAPRIL ACTAVIS TABLET [Suspect]
     Active Substance: ENALAPRIL
  3. BISOPROLOL TEVA TABLET [Suspect]
     Active Substance: BISOPROLOL
     Route: 048

REACTIONS (2)
  - Blood creatinine increased [Recovered/Resolved]
  - Bradycardia [Recovered/Resolved]
